FAERS Safety Report 6043314-4 (Version None)
Quarter: 2009Q1

REPORT INFORMATION
  Report Type: 
  Country: None (occurrence: None)
  Receive Date: 20090115
  Receipt Date: 20090107
  Transmission Date: 20090719
  Serious: Yes (Other)
  Sender: FDA-Public Use
  Company Number: CHPA2009US00555

PATIENT
  Age: 40 Year
  Sex: Male
  Weight: 82.5 kg

DRUGS (4)
  1. PRIVATE LABEL (NCH) (NICOTINE) TRANS-THREAPEUTIC-SYSTEM [Suspect]
     Indication: SMOKING CESSATION THERAPY
     Dosage: 21 MG, TRANSDERMAL
     Route: 062
     Dates: start: 20080101
  2. CHANTIX [Suspect]
     Indication: SMOKING CESSATION THERAPY
     Dosage: ORAL
     Route: 048
     Dates: start: 20081101, end: 20081101
  3. NICOTINE [Suspect]
     Indication: SMOKING CESSATION THERAPY
     Dosage: 21 MG, QD, TRANSDERMAL, 14 MG, QD, TRANSDERMAL
     Route: 062
     Dates: start: 20081201, end: 20090102
  4. NICOTINE [Suspect]
     Indication: SMOKING CESSATION THERAPY
     Dosage: 21 MG, QD, TRANSDERMAL, 14 MG, QD, TRANSDERMAL
     Route: 062
     Dates: start: 20090103

REACTIONS (6)
  - CONVULSION [None]
  - DEVICE INEFFECTIVE [None]
  - INTENTIONAL DRUG MISUSE [None]
  - NAUSEA [None]
  - PRODUCT QUALITY ISSUE [None]
  - TREATMENT NONCOMPLIANCE [None]
